FAERS Safety Report 15367502 (Version 1)
Quarter: 2018Q3

REPORT INFORMATION
  Report Type: Spontaneous
  Country: US (occurrence: US)
  Receive Date: 20180904
  Receipt Date: 20180904
  Transmission Date: 20181010
  Serious: Yes (Hospitalization)
  Sender: FDA-Public Use
  Company Number: None

PATIENT
  Age: 82 Year
  Sex: Male
  Weight: 89 kg

DRUGS (1)
  1. PREDNISONE. [Suspect]
     Active Substance: PREDNISONE
     Indication: CARDIAC FAILURE CONGESTIVE
     Route: 048
     Dates: start: 20180826, end: 20180828

REACTIONS (6)
  - Dyspnoea [None]
  - Fluid retention [None]
  - Dizziness [None]
  - Fall [None]
  - Vertigo [None]
  - Blood creatine phosphokinase increased [None]

NARRATIVE: CASE EVENT DATE: 20180828
